FAERS Safety Report 10160577 (Version 3)
Quarter: 2014Q3

REPORT INFORMATION
  Report Type: Spontaneous
  Country: US (occurrence: US)
  Receive Date: 20140508
  Receipt Date: 20140910
  Transmission Date: 20150326
  Serious: Yes (Other)
  Sender: FDA-Public Use
  Company Number: US-TEVA-480162USA

PATIENT
  Sex: Female

DRUGS (1)
  1. PARAGARD T380A [Suspect]
     Active Substance: COPPER
     Indication: CONTRACEPTION
     Route: 015
     Dates: start: 2008, end: 201404

REACTIONS (32)
  - Embedded device [Unknown]
  - Discomfort [Unknown]
  - Affect lability [Unknown]
  - Tearfulness [Unknown]
  - Haemorrhage [Unknown]
  - Malaise [Unknown]
  - Vaginal haemorrhage [Unknown]
  - Activities of daily living impaired [Unknown]
  - Muscle spasms [Unknown]
  - Emotional distress [Unknown]
  - Medical device complication [Unknown]
  - Nausea [Unknown]
  - Headache [Unknown]
  - Choking [Unknown]
  - Uterine inflammation [Unknown]
  - Dyspareunia [Unknown]
  - Depression [Unknown]
  - Anxiety [Unknown]
  - Fatigue [Unknown]
  - Menorrhagia [Unknown]
  - Palpitations [Unknown]
  - Device breakage [Not Recovered/Not Resolved]
  - Abdominal pain [Unknown]
  - Mood altered [Unknown]
  - Anxiety disorder [Unknown]
  - Impaired work ability [Unknown]
  - Pain [Unknown]
  - Depressed mood [Unknown]
  - Asthenia [Unknown]
  - Insomnia [Unknown]
  - Incisional drainage [Unknown]
  - Infertility [Unknown]
